FAERS Safety Report 18441237 (Version 1)
Quarter: 2020Q4

REPORT INFORMATION
  Report Type: Report from Study
  Country: US (occurrence: US)
  Receive Date: 20201029
  Receipt Date: 20201029
  Transmission Date: 20210114
  Serious: No
  Sender: FDA-Public Use
  Company Number: NVSC2020US287408

PATIENT
  Sex: Female

DRUGS (1)
  1. ENTRESTO [Suspect]
     Active Substance: SACUBITRIL\VALSARTAN
     Indication: PRODUCT USED FOR UNKNOWN INDICATION
     Dosage: UNK UNK, BID
     Route: 048

REACTIONS (8)
  - Pain [Unknown]
  - Throat tightness [Unknown]
  - Heart rate increased [Unknown]
  - Pain in extremity [Unknown]
  - Anxiety [Unknown]
  - Illness [Unknown]
  - Urine abnormality [Unknown]
  - Blood pressure decreased [Unknown]
